FAERS Safety Report 9598686 (Version 2)
Quarter: 2013Q4

REPORT INFORMATION
  Report Type: Spontaneous
  Country: US (occurrence: US)
  Receive Date: 20131004
  Receipt Date: 20131004
  Transmission Date: 20140711
  Serious: No
  Sender: FDA-Public Use
  Company Number: US-AMGEN-USASP2013022757

PATIENT
  Age: 55 Year
  Sex: Male
  Weight: 126.98 kg

DRUGS (5)
  1. ENBREL [Suspect]
     Indication: PSORIASIS
     Dosage: 50 MG, QWK
     Route: 058
     Dates: start: 201104, end: 201208
  2. ENBREL [Suspect]
     Indication: PSORIATIC ARTHROPATHY
  3. STELARA [Concomitant]
     Indication: PSORIASIS
     Dosage: 90 MG/ML, UNK
  4. DIOVAN [Concomitant]
     Dosage: 40 MG, UNK
  5. METFORMIN [Concomitant]
     Dosage: 1000 MG, UNK

REACTIONS (2)
  - Therapeutic response decreased [Unknown]
  - Psoriasis [Unknown]
